FAERS Safety Report 4295423-8 (Version None)
Quarter: 2004Q1

REPORT INFORMATION
  Report Type: 
  Country: None (occurrence: None)
  Receive Date: 20040212
  Receipt Date: 20040127
  Transmission Date: 20041129
  Serious: Yes (Hospitalization)
  Sender: FDA-Public Use
  Company Number: A01200400392

PATIENT
  Age: 41 Year
  Sex: Female

DRUGS (7)
  1. ELOXATIN- (OXALIPLATIN) -UNKNOWN- UNIT DOSE: [Suspect]
     Indication: COLORECTAL CANCER
     Dosage: 160 MG Q2W, INTRAVENOUS NOS
     Route: 042
     Dates: start: 20040121, end: 20040121
  2. LEUCOVORIN CALCIUM [Concomitant]
  3. FLUOROURACIL [Concomitant]
  4. ZOFRAN [Concomitant]
  5. DECADRON [Concomitant]
  6. MAGNESIUM SULFATE [Concomitant]
  7. CALCIUM GLUCONETE (CALCIUM GLUCONATE) [Concomitant]

REACTIONS (17)
  - COMPUTERISED TOMOGRAM ABNORMAL [None]
  - COUGH [None]
  - CSF TEST ABNORMAL [None]
  - DYSARTHRIA [None]
  - DYSPHAGIA [None]
  - ERYTHEMA [None]
  - EYE PAIN [None]
  - FACIAL PAIN [None]
  - HEADACHE [None]
  - HYPOAESTHESIA ORAL [None]
  - NECK PAIN [None]
  - NEUROTOXICITY [None]
  - NUCLEAR MAGNETIC RESONANCE IMAGING ABNORMAL [None]
  - PAIN IN JAW [None]
  - RESTLESSNESS [None]
  - SENSATION OF FOREIGN BODY [None]
  - TONGUE DISORDER [None]
